FAERS Safety Report 6020642-X (Version None)
Quarter: 2008Q4

REPORT INFORMATION
  Report Type: 
  Country: None (occurrence: None)
  Receive Date: 20081222
  Receipt Date: 20081203
  Transmission Date: 20090506
  Serious: Yes (Hospitalization)
  Sender: FDA-Public Use
  Company Number: 2008PL000275

PATIENT
  Age: 4 Month
  Sex: Female

DRUGS (4)
  1. LABETALOL HYDROCHLORIDE [Suspect]
     Indication: HYPERTENSION
  2. NICARDIPINE HYDROCHLORIDE [Concomitant]
  3. ENALAPRIL MALEATE [Concomitant]
  4. EPOGEN [Concomitant]

REACTIONS (11)
  - ANAEMIA [None]
  - CARDIAC FAILURE [None]
  - CARDIOGENIC SHOCK [None]
  - CONDITION AGGRAVATED [None]
  - DRUG RESISTANCE [None]
  - HYPERTENSION [None]
  - HYPERTROPHIC CARDIOMYOPATHY [None]
  - NEPHRECTOMY [None]
  - PERICARDITIS [None]
  - RED BLOOD CELL SCHISTOCYTES PRESENT [None]
  - THROMBOCYTOPENIA [None]
